FAERS Safety Report 4423908-X (Version None)
Quarter: 2004Q3

REPORT INFORMATION
  Report Type: 
  Country: None (occurrence: None)
  Receive Date: 20040806
  Receipt Date: 20040715
  Transmission Date: 20050211
  Serious: Yes (Death)
  Sender: FDA-Public Use
  Company Number: EWC040539091

PATIENT
  Age: 73 Year
  Sex: Male

DRUGS (6)
  1. XIGRIS [Suspect]
     Indication: SEPSIS
     Dosage: 4.6 ML/HR
     Dates: start: 20040409, end: 20040409
  2. NORADRENALINE [Concomitant]
  3. ADRENALINE [Concomitant]
  4. GENTAMYCIN SULFATE [Concomitant]
  5. FRAXIPARINE(HEPARIN-FRACTION, CALCIUM SALT) [Concomitant]
  6. CEFUROXIME [Concomitant]

REACTIONS (2)
  - SEPTIC SHOCK [None]
  - SYSTEMIC INFLAMMATORY RESPONSE SYNDROME [None]
